FAERS Safety Report 5420151-2 (Version None)
Quarter: 2007Q3

REPORT INFORMATION
  Report Type: 
  Country: None (occurrence: None)
  Receive Date: 20070820
  Receipt Date: 20070801
  Transmission Date: 20080115
  Serious: No
  Sender: FDA-Public Use
  Company Number: US-BOEHRINGER INGELHEIM PHARMACEUTICALS, INC.-2007-BP-06416BP

PATIENT
  Age: 82 Year
  Sex: Male
  Weight: 77 kg

DRUGS (5)
  1. FLOMAX [Suspect]
     Indication: BENIGN PROSTATIC HYPERPLASIA
     Route: 048
     Dates: start: 20060304
  2. ATENOLOL [Concomitant]
  3. PRILOSEC [Concomitant]
  4. VITAMIN CAP [Concomitant]
  5. GLUCOSAMINE [Concomitant]

REACTIONS (3)
  - INFECTION [None]
  - NOCTURIA [None]
  - PROSTATITIS [None]
